FAERS Safety Report 6308261-9 (Version None)
Quarter: 2009Q3

REPORT INFORMATION
  Report Type: 
  Country: None (occurrence: None)
  Receive Date: 20090813
  Receipt Date: 20090713
  Transmission Date: 20100115
  Serious: No
  Sender: FDA-Public Use
  Company Number: US-BAYER-200912445BCC

PATIENT
  Age: 84 Year
  Sex: Female
  Weight: 79 kg

DRUGS (2)
  1. FINACEA [Suspect]
     Indication: ROSACEA
     Dosage: APPLIED TO FACE TWICE A DAY
     Route: 061
     Dates: start: 20090615, end: 20090701
  2. METROGEL [Concomitant]
     Indication: ROSACEA
     Route: 065

REACTIONS (1)
  - BURNING SENSATION [None]
